FAERS Safety Report 10695045 (Version 6)
Quarter: 2015Q3

REPORT INFORMATION
  Report Type: Spontaneous
  Country: IL (occurrence: IL)
  Receive Date: 20150107
  Receipt Date: 20150804
  Transmission Date: 20151125
  Serious: Yes (Other)
  Sender: FDA-Public Use
  Company Number: IL-JNJFOC-20141220043

PATIENT
  Age: 60 Year
  Sex: Female

DRUGS (4)
  1. SIMPONI [Suspect]
     Active Substance: GOLIMUMAB
     Indication: RHEUMATOID ARTHRITIS
     Route: 058
     Dates: start: 20141127
  2. SIMPONI [Suspect]
     Active Substance: GOLIMUMAB
     Indication: RHEUMATOID ARTHRITIS
     Route: 058
     Dates: start: 20141225
  3. SIMPONI [Suspect]
     Active Substance: GOLIMUMAB
     Indication: RHEUMATOID ARTHRITIS
     Route: 058
     Dates: start: 20150728
  4. SIMPONI [Suspect]
     Active Substance: GOLIMUMAB
     Indication: RHEUMATOID ARTHRITIS
     Route: 058
     Dates: start: 20141030

REACTIONS (14)
  - Dysuria [Not Recovered/Not Resolved]
  - Headache [Unknown]
  - Back pain [Recovered/Resolved]
  - Drug ineffective [Unknown]
  - Oral candidiasis [Not Recovered/Not Resolved]
  - Dry mouth [Unknown]
  - Injection site reaction [Unknown]
  - Crohn^s disease [Unknown]
  - Asphyxia [Recovered/Resolved]
  - Urinary tract infection [Unknown]
  - Injection site erythema [Not Recovered/Not Resolved]
  - Needle issue [Unknown]
  - Drug effect decreased [Unknown]
  - Dysphagia [Unknown]

NARRATIVE: CASE EVENT DATE: 201412
